FAERS Safety Report 7901800-3 (Version None)
Quarter: 2011Q4

REPORT INFORMATION
  Report Type: 
  Country: None (occurrence: None)
  Receive Date: 20111108
  Receipt Date: 20111101
  Transmission Date: 20120403
  Serious: Yes (Hospitalization, Other)
  Sender: FDA-Public Use
  Company Number: PHEH2011US07398

PATIENT
  Age: 16 Year
  Sex: Male
  Weight: 41.723 kg

DRUGS (2)
  1. TOBI [Suspect]
     Dosage: 300 MG, BID FOR 28 DAYS EVERY OTHER MONTH
     Dates: start: 20080227
  2. PULMOZYME [Concomitant]

REACTIONS (1)
  - UPPER RESPIRATORY TRACT INFECTION [None]
